FAERS Safety Report 8926457 (Version 2)
Quarter: 2012Q4

REPORT INFORMATION
  Report Type: 
  Country: FR (occurrence: FR)
  Receive Date: 20121127
  Receipt Date: 20121204
  Transmission Date: 20130627
  Serious: Yes (Other)
  Sender: FDA-Public Use
  Company Number: FR-PFIZER INC-2012291968

PATIENT
  Age: 60 Year
  Sex: Female

DRUGS (3)
  1. SUTENT [Suspect]
     Indication: RENAL CANCER METASTATIC
     Dosage: 50 mg, 1x/day, 4 weeks out of 6
     Route: 048
     Dates: start: 201011, end: 2011
  2. SUTENT [Suspect]
     Dosage: 37.5 mg, 1x/day, 4 weeks out of 6
     Route: 048
     Dates: start: 2011, end: 2011
  3. SUTENT [Suspect]
     Dosage: 37.5 mg, 1x/day, continuously
     Route: 048
     Dates: start: 2011

REACTIONS (8)
  - Yellow nail syndrome [Not Recovered/Not Resolved]
  - Onycholysis [Not Recovered/Not Resolved]
  - Palmar-plantar erythrodysaesthesia syndrome [Not Recovered/Not Resolved]
  - Diarrhoea [Not Recovered/Not Resolved]
  - Neutropenia [Unknown]
  - Thrombocytopenia [Unknown]
  - Hypothyroidism [Unknown]
  - Proctalgia [Unknown]
